FAERS Safety Report 23938196 (Version 1)
Quarter: 2024Q2

REPORT INFORMATION
  Report Type: Spontaneous
  Country: CN (occurrence: CN)
  Receive Date: 20240604
  Receipt Date: 20240604
  Transmission Date: 20240716
  Serious: Yes (Hospitalization)
  Sender: FDA-Public Use
  Company Number: CN-002147023-NVSC2024CN116116

PATIENT
  Age: 26 Year
  Sex: Male
  Weight: 50 kg

DRUGS (1)
  1. OXCARBAZEPINE [Suspect]
     Active Substance: OXCARBAZEPINE
     Indication: Epilepsy
     Dosage: 0.30 G, BID
     Route: 048
     Dates: start: 20240408, end: 20240424

REACTIONS (9)
  - Gait disturbance [Recovering/Resolving]
  - Blood pressure increased [Recovering/Resolving]
  - Decreased appetite [Recovering/Resolving]
  - Eating disorder symptom [Unknown]
  - Hypophagia [Unknown]
  - Asthenia [Recovering/Resolving]
  - Nausea [Recovered/Resolved]
  - Vomiting [Recovered/Resolved]
  - Mental disorder [Unknown]

NARRATIVE: CASE EVENT DATE: 20240401
